FAERS Safety Report 15266700 (Version 3)
Quarter: 2018Q3

REPORT INFORMATION
  Report Type: Spontaneous
  Country: US (occurrence: US)
  Receive Date: 20180810
  Receipt Date: 20180904
  Transmission Date: 20181010
  Serious: Yes (Other)
  Sender: FDA-Public Use
  Company Number: US-SA-2018SA219070

PATIENT
  Age: 48 Year
  Sex: Female

DRUGS (15)
  1. POTASSIUM [Concomitant]
     Active Substance: POTASSIUM
  2. AUBAGIO [Suspect]
     Active Substance: TERIFLUNOMIDE
     Indication: MULTIPLE SCLEROSIS
     Dosage: 14 MG, QD
     Route: 048
     Dates: start: 20180706
  3. DOXYCYCLINE HYCLATE. [Concomitant]
     Active Substance: DOXYCYCLINE HYCLATE
  4. IMIPRAMINE [Concomitant]
     Active Substance: IMIPRAMINE
  5. LYRICA [Concomitant]
     Active Substance: PREGABALIN
  6. ARMODAFINIL. [Concomitant]
     Active Substance: ARMODAFINIL
  7. NAPROXEN. [Concomitant]
     Active Substance: NAPROXEN
  8. HORIZANT [Concomitant]
     Active Substance: GABAPENTIN ENACARBIL
  9. AMPYRA [Concomitant]
     Active Substance: DALFAMPRIDINE
  10. TOVIAZ [Concomitant]
     Active Substance: FESOTERODINE FUMARATE
  11. LASIX [Concomitant]
     Active Substance: FUROSEMIDE
  12. ESCITALOPRAM [Concomitant]
     Active Substance: ESCITALOPRAM OXALATE
  13. BACLOFEN. [Concomitant]
     Active Substance: BACLOFEN
  14. TROSPIUM CHLORIDE. [Concomitant]
     Active Substance: TROSPIUM CHLORIDE
  15. LEXAPRO [Concomitant]
     Active Substance: ESCITALOPRAM OXALATE

REACTIONS (7)
  - Hallucination [Unknown]
  - Pain [Not Recovered/Not Resolved]
  - Mental impairment [Not Recovered/Not Resolved]
  - Gait disturbance [Not Recovered/Not Resolved]
  - Asthenia [Not Recovered/Not Resolved]
  - Fatigue [Not Recovered/Not Resolved]
  - Quality of life decreased [Not Recovered/Not Resolved]

NARRATIVE: CASE EVENT DATE: 20180804
